FAERS Safety Report 13188115 (Version 2)
Quarter: 2017Q2

REPORT INFORMATION
  Report Type: Spontaneous
  Country: US (occurrence: US)
  Receive Date: 20170206
  Receipt Date: 20170424
  Transmission Date: 20170830
  Serious: No
  Sender: FDA-Public Use
  Company Number: US-LEO PHARMA-245719

PATIENT
  Age: 55 Year
  Sex: Female

DRUGS (1)
  1. PICATO [Suspect]
     Active Substance: INGENOL MEBUTATE
     Indication: PRECANCEROUS SKIN LESION
     Route: 061
     Dates: start: 20170123, end: 20170124

REACTIONS (7)
  - Application site pain [Recovered/Resolved]
  - Precancerous skin lesion [Not Recovered/Not Resolved]
  - Loss of personal independence in daily activities [Recovered/Resolved]
  - Application site erosion [Recovered/Resolved]
  - Insomnia [Recovered/Resolved]
  - Application site vesicles [Recovered/Resolved]
  - Application site discharge [Recovered/Resolved]
